APPROVED DRUG PRODUCT: CALQUENCE
Active Ingredient: ACALABRUTINIB MALEATE
Strength: EQ 100MG BASE
Dosage Form/Route: TABLET;ORAL
Application: N216387 | Product #001
Applicant: ASTRAZENECA UK LTD
Approved: Aug 3, 2022 | RLD: Yes | RS: Yes | Type: RX

PATENTS:
Patent 10272083 | Expires: Jan 21, 2035
Patent 11059829 | Expires: Jul 1, 2036
Patent 9758524 | Expires: Jul 11, 2032
Patent 11059829 | Expires: Jul 1, 2036
Patent 11059829 | Expires: Jul 1, 2036
Patent 11059829 | Expires: Jul 1, 2036
Patent 11059829 | Expires: Jul 1, 2036
Patent 11059829 | Expires: Jul 1, 2036
Patent 11059829 | Expires: Jul 1, 2036
Patent 11059829 | Expires: Jul 1, 2036
Patent 10272083 | Expires: Jan 21, 2035
Patent 10272083 | Expires: Jan 21, 2035
Patent 10272083 | Expires: Jan 21, 2035
Patent 10272083 | Expires: Jan 21, 2035
Patent 10272083 | Expires: Jan 21, 2035
Patent 10272083 | Expires: Jan 21, 2035
Patent 10272083 | Expires: Jan 21, 2035
Patent 11771696 | Expires: Jan 21, 2035
Patent 10239883 | Expires: Jul 11, 2032
Patent 10239883 | Expires: Jul 11, 2032
Patent 9758524 | Expires: Jul 11, 2032
Patent 7459554 | Expires: Nov 24, 2026
Patent 9290504 | Expires: Jul 11, 2032

EXCLUSIVITY:
Code: I-960 | Date: Jan 16, 2028